FAERS Safety Report 21450486 (Version 1)
Quarter: 2022Q4

REPORT INFORMATION
  Report Type: Spontaneous
  Country: US (occurrence: None)
  Receive Date: 20221012
  Receipt Date: 20221012
  Transmission Date: 20230113
  Serious: Yes (Hospitalization)
  Sender: FDA-Public Use
  Company Number: None

PATIENT
  Age: 77 Year
  Sex: Female

DRUGS (1)
  1. OPSUMIT [Suspect]
     Active Substance: MACITENTAN
     Indication: Pulmonary arterial hypertension
     Dosage: FREQUENCY : DAILY;?
     Route: 048
     Dates: start: 202009

REACTIONS (5)
  - Oxygen saturation decreased [None]
  - Lung disorder [None]
  - Laboratory test abnormal [None]
  - Lung carcinoma cell type unspecified recurrent [None]
  - Headache [None]

NARRATIVE: CASE EVENT DATE: 20221005
